APPROVED DRUG PRODUCT: LIDOCAINE HYDROCHLORIDE VISCOUS
Active Ingredient: LIDOCAINE HYDROCHLORIDE
Strength: 2%
Dosage Form/Route: SOLUTION;ORAL
Application: A086578 | Product #001
Applicant: ACTAVIS MID ATLANTIC LLC
Approved: Approved Prior to Jan 1, 1982 | RLD: No | RS: No | Type: DISCN